FAERS Safety Report 22270207 (Version 1)
Quarter: 2023Q2

REPORT INFORMATION
  Report Type: Spontaneous
  Country: US (occurrence: US)
  Receive Date: 20230501
  Receipt Date: 20230501
  Transmission Date: 20230722
  Serious: Yes (Other)
  Sender: FDA-Public Use
  Company Number: US-OTSUKA-2023_010797

PATIENT
  Age: 21 Month
  Sex: Male

DRUGS (12)
  1. BUSULFAN [Suspect]
     Active Substance: BUSULFAN
     Indication: Stem cell transplant
     Dosage: DAYS ?6, ?4, AND ?3 AS A SINGLE DAILY DOSE IV OVER 3 H
     Route: 042
  2. BUSULFAN [Suspect]
     Active Substance: BUSULFAN
     Indication: Bone marrow conditioning regimen
  3. BUSULFAN [Suspect]
     Active Substance: BUSULFAN
     Indication: Immunodeficiency
  4. THIOTEPA [Suspect]
     Active Substance: THIOTEPA
     Indication: Stem cell transplant
     Dosage: 5 MG/M2 OVER 2 H ON DAY -7
     Route: 042
  5. THIOTEPA [Suspect]
     Active Substance: THIOTEPA
     Indication: Bone marrow conditioning regimen
     Dosage: 10 MG/KG FOR 2 HOURS
     Route: 042
  6. THIOTEPA [Suspect]
     Active Substance: THIOTEPA
     Indication: Immunodeficiency
  7. FLUDARABINE [Suspect]
     Active Substance: FLUDARABINE PHOSPHATE
     Indication: Stem cell transplant
     Dosage: 40 MG/M2, OVER 60 MIN ON DAYS -6 TO -3
     Route: 042
  8. FLUDARABINE [Suspect]
     Active Substance: FLUDARABINE PHOSPHATE
     Indication: Bone marrow conditioning regimen
  9. FLUDARABINE [Suspect]
     Active Substance: FLUDARABINE PHOSPHATE
     Indication: Immunodeficiency
  10. ANTI-THYMOCYTE GLOBULIN (RABBIT) NOS [Suspect]
     Active Substance: LAPINE T-LYMPHOCYTE IMMUNE GLOBULIN
     Indication: Stem cell transplant
     Dosage: 2 MG/KG, QD ,GIVEN VIA 0.22-?M FILTER OVER 6-10 H ON DAYS -3 TO -1
     Route: 042
  11. ANTI-THYMOCYTE GLOBULIN (RABBIT) NOS [Suspect]
     Active Substance: LAPINE T-LYMPHOCYTE IMMUNE GLOBULIN
     Indication: Bone marrow conditioning regimen
  12. ANTI-THYMOCYTE GLOBULIN (RABBIT) NOS [Suspect]
     Active Substance: LAPINE T-LYMPHOCYTE IMMUNE GLOBULIN
     Indication: Immunodeficiency

REACTIONS (3)
  - PFAPA syndrome [Unknown]
  - Mucosal inflammation [Unknown]
  - Product use in unapproved indication [Unknown]
